FAERS Safety Report 6470781-4 (Version None)
Quarter: 2009Q4

REPORT INFORMATION
  Report Type: 
  Country: None (occurrence: None)
  Receive Date: 20091203
  Receipt Date: 20091127
  Transmission Date: 20100525
  Serious: Yes (Hospitalization)
  Sender: FDA-Public Use
  Company Number: B0610413A

PATIENT
  Sex: Male

DRUGS (2)
  1. AUGMENTIN '125' [Suspect]
     Dosage: 2G PER DAY
     Route: 048
     Dates: start: 20090824, end: 20090831
  2. LORNOXICAM [Suspect]
     Dosage: 8MG PER DAY
     Route: 048
     Dates: start: 20090824, end: 20090831

REACTIONS (6)
  - EYE OEDEMA [None]
  - LOCALISED OEDEMA [None]
  - OCULAR HYPERAEMIA [None]
  - OEDEMA PERIPHERAL [None]
  - PRURITUS [None]
  - TONGUE OEDEMA [None]
